FAERS Safety Report 16898058 (Version 1)
Quarter: 2019Q4

REPORT INFORMATION
  Report Type: Spontaneous
  Country: US (occurrence: US)
  Receive Date: 20191009
  Receipt Date: 20191009
  Transmission Date: 20200122
  Serious: Yes (Other)
  Sender: FDA-Public Use
  Company Number: US-AMGEN-USASP2019162964

PATIENT
  Age: 71 Year
  Sex: Male

DRUGS (2)
  1. MESALAMINE. [Concomitant]
     Active Substance: MESALAMINE
     Dosage: 400 MILLIGRAM, TID, TWO CAPSULES
  2. PROLIA [Suspect]
     Active Substance: DENOSUMAB
     Indication: OSTEOPOROSIS
     Dosage: UNK
     Route: 065
     Dates: start: 201908

REACTIONS (3)
  - Bronchitis [Not Recovered/Not Resolved]
  - Ill-defined disorder [Unknown]
  - Colitis [Unknown]

NARRATIVE: CASE EVENT DATE: 2019
